FAERS Safety Report 8266589-X (Version None)
Quarter: 2012Q2

REPORT INFORMATION
  Report Type: 
  Country: None (occurrence: None)
  Receive Date: 20120406
  Receipt Date: 20120323
  Transmission Date: 20120825
  Serious: Yes (Hospitalization)
  Sender: FDA-Public Use
  Company Number: DE-BAXTER-2011BH039131

PATIENT
  Sex: Female
  Weight: 100 kg

DRUGS (1)
  1. ARTISS [Suspect]
     Indication: ABDOMINOPLASTY
     Route: 065
     Dates: start: 20111202

REACTIONS (2)
  - FAT NECROSIS [None]
  - INFLAMMATION [None]
